FAERS Safety Report 10930156 (Version 6)
Quarter: 2015Q2

REPORT INFORMATION
  Report Type: Spontaneous
  Country: FR (occurrence: FR)
  Receive Date: 20150319
  Receipt Date: 20150522
  Transmission Date: 20150821
  Serious: Yes (Hospitalization)
  Sender: FDA-Public Use
  Company Number: FR-PFIZER INC-2015093589

PATIENT
  Age: 80 Year
  Sex: Female

DRUGS (34)
  1. LYRICA [Suspect]
     Active Substance: PREGABALIN
     Indication: BACK PAIN
     Dosage: 150 MG, 2X/DAY
     Route: 048
     Dates: start: 20141021, end: 20141024
  2. SUCROSE [Concomitant]
     Active Substance: SUCROSE
     Dosage: UNK
  3. MALTODEXTRIN [Concomitant]
     Active Substance: MALTODEXTRIN
  4. POTASSIUM CITRATE. [Concomitant]
     Active Substance: POTASSIUM CITRATE
  5. SODIUM SELENITE [Concomitant]
     Active Substance: SODIUM SELENITE
     Dosage: UNK
  6. SODIUM FLUORIDE. [Concomitant]
     Active Substance: SODIUM FLUORIDE
  7. DEXERYL /01579901/ [Concomitant]
     Active Substance: GLYCERIN\PARAFFIN
     Dosage: UNK
  8. ZINC SULFATE [Concomitant]
     Active Substance: ZINC SULFATE\ZINC SULFATE ANHYDROUS
  9. CHOLINE CHLORIDE [Concomitant]
     Active Substance: CHOLINE CHLORIDE
     Dosage: UNK
  10. LAMALINE [Suspect]
     Active Substance: ACETAMINOPHEN\CAFFEINE\OPIUM
     Dosage: 3 DF, DAILY
     Route: 048
     Dates: end: 20141024
  11. TOCOPHERYL ACETATE [Concomitant]
     Active Substance: .ALPHA.-TOCOPHEROL ACETATE
  12. RIBOFLAVIN [Concomitant]
     Active Substance: RIBOFLAVIN
  13. COOLMETEC [Suspect]
     Active Substance: HYDROCHLOROTHIAZIDE\OLMESARTAN MEDOXOMIL
     Indication: HYPERTENSION
     Dosage: 20 MG/25 MG 1 DF, 1X/DAY
     Route: 048
     Dates: end: 20141024
  14. MAGNESIUM HYDROXIDE. [Concomitant]
     Active Substance: MAGNESIUM HYDROXIDE
     Dosage: UNK
  15. NICOTINAMIDE [Concomitant]
     Active Substance: NIACINAMIDE
  16. MANGANESE SULFATE. [Concomitant]
     Active Substance: MANGANESE SULFATE
  17. CHROMIC CHLORIDE. [Concomitant]
     Active Substance: CHROMIC CHLORIDE
  18. FOLIC ACID. [Concomitant]
     Active Substance: FOLIC ACID
  19. AERIUS [Concomitant]
     Active Substance: DESLORATADINE
     Dosage: 5 MG, 1X/DAY
  20. CITRIC ACID [Concomitant]
     Active Substance: CITRIC ACID MONOHYDRATE
     Dosage: UNK
  21. SODIUM CITRATE. [Concomitant]
     Active Substance: SODIUM CITRATE
  22. SODIUM L-ASCORBATE [Concomitant]
  23. POTASSIUM HYDROXIDE. [Concomitant]
     Active Substance: POTASSIUM HYDROXIDE
  24. FERROUS LACTATE [Concomitant]
     Active Substance: FERROUS LACTATE
  25. RETINYL ACETATE [Concomitant]
  26. COPPER GLUCONATE [Concomitant]
     Active Substance: COPPER GLUCONATE
  27. CALCIUM PANTOTHENATE [Concomitant]
     Active Substance: CALCIUM PANTOTHENATE
  28. THIAMINE HYDROCHLORIDE. [Concomitant]
     Active Substance: THIAMINE HYDROCHLORIDE
  29. POTASSIUM IODIDE [Concomitant]
     Active Substance: POTASSIUM IODIDE
  30. FORTIMEL [Concomitant]
     Active Substance: DIETARY SUPPLEMENT
     Dosage: 1 DF, 1X/DAY
  31. GLUCOPHAGE [Concomitant]
     Active Substance: METFORMIN HYDROCHLORIDE
     Dosage: 1000 MG, 1X/DAY
  32. LIPANTHYL [Concomitant]
     Active Substance: FENOFIBRATE
     Dosage: 160 MG, 1X/DAY
  33. CHOLECALCIFEROL [Concomitant]
     Active Substance: CHOLECALCIFEROL
  34. PYRIDOXINE HYDROCHLORIDE. [Concomitant]
     Active Substance: PYRIDOXINE HYDROCHLORIDE

REACTIONS (1)
  - Fall [Recovered/Resolved]

NARRATIVE: CASE EVENT DATE: 20141021
